FAERS Safety Report 23387957 (Version 1)
Quarter: 2024Q1

REPORT INFORMATION
  Report Type: Report from Study
  Country: CA (occurrence: CA)
  Receive Date: 20240110
  Receipt Date: 20240110
  Transmission Date: 20240410
  Serious: Yes (Other)
  Sender: FDA-Public Use
  Company Number: CA-002147023-NVSC2022CA249032

PATIENT
  Sex: Female

DRUGS (21)
  1. AMOXICILLIN\CLAVULANATE POTASSIUM [Suspect]
     Active Substance: AMOXICILLIN\CLAVULANATE POTASSIUM
     Indication: Product used for unknown indication
     Dosage: 1000 MG, BID (MORNING AND EVENING FOR 10 DAYS)
     Route: 065
  2. BISOPROLOL [Suspect]
     Active Substance: BISOPROLOL\BISOPROLOL FUMARATE
     Indication: Product used for unknown indication
     Dosage: 5 MG, QD (? TABLET ONCE DAILY IN THE MORNING)
     Route: 065
  3. METHOTREXATE [Suspect]
     Active Substance: METHOTREXATE
     Indication: Product used for unknown indication
     Dosage: (20 MG/ 0.8 ML), QW (ONCE WEEKLY FOR LONG PERIOD, SUSPEND FROM 18 AT 24 OCT)
     Route: 058
  4. RITUXIMAB [Suspect]
     Active Substance: RITUXIMAB
     Indication: Granulomatosis with polyangiitis
     Dosage: 1000 MG (1G) (VIAL)
     Route: 042
     Dates: start: 20220505
  5. RITUXIMAB [Suspect]
     Active Substance: RITUXIMAB
     Dosage: UNK (10 MILLIGRAM PER MILLILITRE (1000 MG/100 ML ON DAY 1 AND DAY 15)
     Route: 042
     Dates: start: 20220519
  6. ACETAMINOPHEN [Concomitant]
     Active Substance: ACETAMINOPHEN
     Indication: Product used for unknown indication
     Dosage: 325 MG (2 TABLETS 30 MINUTES BEFORE INFUSION)
     Route: 065
  7. ALENDRONATE SODIUM [Concomitant]
     Active Substance: ALENDRONATE SODIUM
     Indication: Osteoporosis
     Dosage: 1 DOSAGE FORM, QW  (1 TABLET ONCE A WEEK UPON RISING AT LEAST 30 MINUTES BEFORE BREAKFAST)(1 TABLET
     Route: 065
  8. GABAPENTIN [Concomitant]
     Active Substance: GABAPENTIN
     Indication: Product used for unknown indication
     Dosage: 1 DOSAGE FORM, QD (1 TABLET ONCE A DAY AT BEDTIME)
     Route: 065
  9. ATORVASTATIN [Concomitant]
     Active Substance: ATORVASTATIN
     Indication: Product used for unknown indication
     Dosage: 1 DOSAGE FORM, QD (1 TABLET ONCE DAILY AT BEDTIME)
     Route: 065
  10. CETIRIZINE [Concomitant]
     Active Substance: CETIRIZINE HYDROCHLORIDE
     Indication: Hypersensitivity
     Dosage: 1 DOSAGE FORM, QD (AT BEDTIME)
     Route: 065
  11. CLOPIDOGREL [Concomitant]
     Active Substance: CLOPIDOGREL BISULFATE
     Indication: Blood disorder
     Dosage: 1 DOSAGE FORM, QD 91 TABLET DAILY WITH THE BREAKFAST)
     Route: 065
  12. JAMP DIPHENHYDRAMINE [Concomitant]
     Indication: Product used for unknown indication
     Dosage: 50 MG (1 TABLET 30 MINUTES BEFORE INFUSION)
     Route: 065
  13. CHOLECALCIFEROL [Concomitant]
     Active Substance: CHOLECALCIFEROL
     Indication: Product used for unknown indication
     Dosage: 1000 IU
     Route: 065
  14. PANTOPRAZOLE [Concomitant]
     Active Substance: PANTOPRAZOLE
     Indication: Ulcer
     Dosage: 1 DOSAGE FORM, QD (1 TABLET DAILY DAY BEFORE BREAKFAST)
     Route: 065
  15. PMS EZETIMIBE [Concomitant]
     Indication: Product used for unknown indication
     Dosage: 1 DOSAGE FORM, QD (1 TABLET ONCE A DAY WITH MOUTHFUL OF WATER REGULARLY)
     Route: 065
  16. ALBUTEROL [Concomitant]
     Active Substance: ALBUTEROL
     Indication: Product used for unknown indication
     Dosage: 100 MG, PRN (2 INHALATIONS IF NEEDED)
     Route: 055
  17. SOLU-MEDROL [Concomitant]
     Active Substance: METHYLPREDNISOLONE SODIUM SUCCINATE
     Indication: Product used for unknown indication
     Dosage: 500 MG (100 MG IV ON  50 ML NACL  0.9 % INJECTABLE 30 MINUTES BEFORE INFUSION)
     Route: 042
  18. GABAPENTIN [Concomitant]
     Active Substance: GABAPENTIN
     Indication: Product used for unknown indication
     Dosage: 1 DOSAGE FORM, TID (1 CAPSULE 3XDAILY, AT BREAKFAST, DINNER, BEDTIME)
     Route: 065
  19. TIOTROPIUM [Concomitant]
     Active Substance: TIOTROPIUM
     Indication: Product used for unknown indication
     Dosage: 18 UG, QD, 1 INHALATION BY MOUTH ONCE DAILY REGULAR
     Route: 048
  20. VITAMIN D NOS [Concomitant]
     Active Substance: VITAMIN D NOS
     Indication: Product used for unknown indication
     Dosage: 10000 IU
     Route: 065
  21. VITAMIN D3 [Concomitant]
     Active Substance: CHOLECALCIFEROL
     Indication: Product used for unknown indication
     Dosage: 1 DOSAGE FORM, QW, WITH MEAL-REGULAR ON SUNDAY
     Route: 065

REACTIONS (1)
  - Pneumonia [Not Recovered/Not Resolved]
